FAERS Safety Report 8152548-4 (Version None)
Quarter: 2012Q1

REPORT INFORMATION
  Report Type: 
  Country: None (occurrence: None)
  Receive Date: 20120221
  Receipt Date: 20120210
  Transmission Date: 20120608
  Serious: Yes (Hospitalization)
  Sender: FDA-Public Use
  Company Number: AT-BRISTOL-MYERS SQUIBB COMPANY-16248734

PATIENT
  Age: 64 Year
  Sex: Female

DRUGS (7)
  1. ASPIRIN [Concomitant]
  2. YERVOY [Suspect]
     Indication: METASTATIC MALIGNANT MELANOMA
     Dosage: 2ND CYCLE:22NOV2011
     Route: 042
     Dates: start: 20111111
  3. FURADANTIN [Concomitant]
  4. DEXAMETHASONE [Concomitant]
  5. PANTOPRAZOLE SODIUM [Concomitant]
  6. TRAMADOL HCL [Concomitant]
  7. BISOPROLOL FUMARATE [Concomitant]

REACTIONS (2)
  - METASTASES TO RETROPERITONEUM [None]
  - FAECALOMA [None]
